FAERS Safety Report 8111263-3 (Version None)
Quarter: 2012Q1

REPORT INFORMATION
  Report Type: 
  Country: None (occurrence: None)
  Receive Date: 20120203
  Receipt Date: 20110722
  Transmission Date: 20120608
  Serious: No
  Sender: FDA-Public Use
  Company Number: US-GLAXOSMITHKLINE-A0938026A

PATIENT
  Age: 3 Year
  Sex: Male

DRUGS (5)
  1. GUANFACINE HYDROCHLORIDE [Concomitant]
     Dosage: 1MG TWICE PER DAY
  2. NAMENDA [Concomitant]
  3. CORTEF [Concomitant]
     Dosage: 30MG PER DAY
  4. LAMOTRIGINE [Suspect]
     Indication: GRAND MAL CONVULSION
     Dosage: 75MG TWICE PER DAY
     Route: 048
     Dates: start: 20110610
  5. OXCARBAZEPINE [Concomitant]
     Dosage: 300MG FOUR TIMES PER DAY

REACTIONS (1)
  - CATATONIA [None]
